FAERS Safety Report 18069491 (Version 3)
Quarter: 2020Q3

REPORT INFORMATION
  Report Type: Report from Study
  Country: US (occurrence: US)
  Receive Date: 20200726
  Receipt Date: 20200811
  Transmission Date: 20201103
  Serious: Yes (Other)
  Sender: FDA-Public Use
  Company Number: NVSC2020US197774

PATIENT
  Age: 75 Year
  Sex: Female
  Weight: 55.79 kg

DRUGS (5)
  1. MYFORTIC [Suspect]
     Active Substance: MYCOPHENOLATE SODIUM
     Indication: SCLERODERMA
     Dosage: UNK UNK, UNKNOWN
     Route: 048
     Dates: start: 20190603
  2. ELIQUIS [Concomitant]
     Active Substance: APIXABAN
     Indication: ATRIAL FIBRILLATION
     Dosage: UNK UNK, UNKNOWN
     Route: 065
  3. OFEV [Suspect]
     Active Substance: NINTEDANIB
     Indication: SYSTEMIC SCLERODERMA
     Dosage: 150 MG, BID
     Route: 048
     Dates: start: 20191011
  4. OFEV [Suspect]
     Active Substance: NINTEDANIB
     Dosage: 100 MG, BID (2 EVERY 1 DAY)
     Route: 048
     Dates: start: 20191108
  5. ATORVASTATIN [Concomitant]
     Active Substance: ATORVASTATIN
     Indication: HYPERLIPIDAEMIA
     Dosage: UNK UNK, UNKNOWN
     Route: 065

REACTIONS (14)
  - Gastrooesophageal reflux disease [Not Recovered/Not Resolved]
  - Oropharyngeal pain [Recovered/Resolved]
  - Cough [Not Recovered/Not Resolved]
  - Back pain [Recovered/Resolved]
  - Oesophageal disorder [Not Recovered/Not Resolved]
  - Oral pain [Unknown]
  - Abdominal distension [Not Recovered/Not Resolved]
  - Liver function test abnormal [Recovered/Resolved]
  - Hepatic enzyme increased [Not Recovered/Not Resolved]
  - Dry mouth [Not Recovered/Not Resolved]
  - Diarrhoea [Not Recovered/Not Resolved]
  - Hypophagia [Unknown]
  - Product use in unapproved indication [Unknown]
  - Abdominal pain upper [Recovered/Resolved]

NARRATIVE: CASE EVENT DATE: 20191014
